FAERS Safety Report 5847851-4 (Version None)
Quarter: 2008Q3

REPORT INFORMATION
  Report Type: 
  Country: None (occurrence: None)
  Receive Date: 20080818
  Receipt Date: 20080812
  Transmission Date: 20090109
  Serious: Yes (Hospitalization)
  Sender: FDA-Public Use
  Company Number: US-BAYER-200110662GDS

PATIENT
  Age: 38 Year
  Sex: Male

DRUGS (1)
  1. CIPROFLOXACIN [Suspect]
     Indication: PRODUCTIVE COUGH
     Dosage: TOTAL DAILY DOSE: 1000 MG
     Route: 065

REACTIONS (1)
  - TENDON RUPTURE [None]
